FAERS Safety Report 16035987 (Version 1)
Quarter: 2019Q1

REPORT INFORMATION
  Report Type: Report from Study
  Country: US (occurrence: US)
  Receive Date: 20190305
  Receipt Date: 20190305
  Transmission Date: 20190418
  Serious: Yes (Hospitalization, Other)
  Sender: FDA-Public Use
  Company Number: US-BRISTOL-MYERS SQUIBB COMPANY-BMS-2019-020003

PATIENT
  Age: 69 Year
  Sex: Female
  Weight: 45.5 kg

DRUGS (1)
  1. NIVOLUMAB [Suspect]
     Active Substance: NIVOLUMAB
     Indication: T-CELL LYMPHOMA
     Dosage: 480 MG, UNK
     Route: 042
     Dates: start: 20180720, end: 20190125

REACTIONS (2)
  - Pneumonia [Unknown]
  - Sepsis [Unknown]

NARRATIVE: CASE EVENT DATE: 20190204
